FAERS Safety Report 10473797 (Version 1)
Quarter: 2014Q3

REPORT INFORMATION
  Report Type: Spontaneous
  Country: CA (occurrence: CA)
  Receive Date: 20140924
  Receipt Date: 20140924
  Transmission Date: 20150326
  Serious: Yes (Other)
  Sender: FDA-Public Use
  Company Number: CA-WATSON-2014-20383

PATIENT
  Age: 3 Year
  Sex: Female

DRUGS (3)
  1. COLCHICINE. [Concomitant]
     Active Substance: COLCHICINE
     Indication: BRUCELLOSIS
     Dosage: UNK
     Route: 065
  2. TESTOSTERONE (UNKNOWN) [Suspect]
     Active Substance: TESTOSTERONE
     Indication: ANDROGEN DEFICIENCY
     Dosage: UNK
     Route: 061
  3. NAPROXEN. [Concomitant]
     Active Substance: NAPROXEN
     Indication: BRUCELLOSIS
     Dosage: UNK
     Route: 065

REACTIONS (6)
  - Blood testosterone increased [Recovered/Resolved]
  - Muscle hypertrophy [Recovered/Resolved with Sequelae]
  - Exposure via direct contact [Recovered/Resolved]
  - Virilism [Recovered/Resolved with Sequelae]
  - Hypertrichosis [Recovered/Resolved with Sequelae]
  - Growth accelerated [Recovered/Resolved with Sequelae]
